FAERS Safety Report 5840946-0 (Version None)
Quarter: 2008Q3

REPORT INFORMATION
  Report Type: 
  Country: None (occurrence: None)
  Receive Date: 20080811
  Receipt Date: 20080731
  Transmission Date: 20090109
  Serious: Yes (Hospitalization)
  Sender: FDA-Public Use
  Company Number: TR-PFIZER INC-2008065333

PATIENT
  Sex: Female
  Weight: 45 kg

DRUGS (1)
  1. SU-011,248 [Suspect]
     Indication: GASTROINTESTINAL STROMAL TUMOUR
     Route: 048
     Dates: start: 20080608, end: 20080623

REACTIONS (3)
  - COGNITIVE DISORDER [None]
  - SPEECH DISORDER [None]
  - VESTIBULAR DISORDER [None]
